FAERS Safety Report 14620282 (Version 3)
Quarter: 2018Q1

REPORT INFORMATION
  Report Type: Spontaneous
  Country: US (occurrence: US)
  Receive Date: 20180309
  Receipt Date: 20180326
  Transmission Date: 20180509
  Serious: Yes (Death, Hospitalization)
  Sender: FDA-Public Use
  Company Number: US-TEVA-2018-US-867247

PATIENT
  Sex: Male
  Weight: 51.76 kg

DRUGS (5)
  1. EPOPROSTENOL. [Suspect]
     Active Substance: EPOPROSTENOL
     Indication: PULMONARY HYPERTENSION
     Dosage: 11 NG/KG/MIN
     Route: 042
     Dates: start: 20180221
  2. SILDENAFIL CITRATE. [Concomitant]
     Active Substance: SILDENAFIL CITRATE
  3. LETAIRIS [Concomitant]
     Active Substance: AMBRISENTAN
  4. UPTRAVI [Concomitant]
     Active Substance: SELEXIPAG
  5. VELETRI [Concomitant]
     Active Substance: EPOPROSTENOL

REACTIONS (4)
  - Tachycardia [Unknown]
  - Dyspnoea [Unknown]
  - Oedema peripheral [Unknown]
  - Death [Fatal]
